FAERS Safety Report 5140050-3 (Version None)
Quarter: 2006Q4

REPORT INFORMATION
  Report Type: 
  Country: None (occurrence: None)
  Receive Date: 20061024
  Receipt Date: 20061005
  Transmission Date: 20070319
  Serious: Yes (Hospitalization)
  Sender: FDA-Public Use
  Company Number: US200609000249

PATIENT
  Age: 35 Year
  Sex: Female
  Weight: 132 kg

DRUGS (11)
  1. ZYPREXA [Suspect]
     Indication: MENTAL DISORDER
     Dosage: SEE IMAGE
     Dates: start: 19990101, end: 20020101
  2. ZYPREXA [Suspect]
     Indication: MENTAL DISORDER
     Dosage: SEE IMAGE
     Dates: start: 20020101
  3. ABILIFY [Concomitant]
  4. SEROQUEL    /UNK/(QUETIAPINE FUMARATE) [Concomitant]
  5. GEODON [Concomitant]
  6. WELLBUTRIN [Concomitant]
  7. CELEXA [Concomitant]
  8. DOXEPIN HCL [Concomitant]
  9. PAXIL [Concomitant]
  10. EFFEXOR [Concomitant]
  11. PREDNISONE TAB [Concomitant]

REACTIONS (9)
  - BLOOD CHOLESTEROL ABNORMAL [None]
  - BLOOD TRIGLYCERIDES INCREASED [None]
  - DIABETES MELLITUS [None]
  - HYPERTENSION [None]
  - METABOLIC DISORDER [None]
  - NEPHROLITHIASIS [None]
  - PRESCRIBED OVERDOSE [None]
  - RENAL DISORDER [None]
  - VISION BLURRED [None]
